FAERS Safety Report 20120095 (Version 3)
Quarter: 2024Q4

REPORT INFORMATION
  Report Type: Report from Study
  Country: US (occurrence: US)
  Receive Date: 20211126
  Receipt Date: 20241129
  Transmission Date: 20250115
  Serious: Yes (Other)
  Sender: TAKEDA
  Company Number: US-TAKEDA-ALL1-2013-02410

PATIENT
  Age: 48 Year
  Sex: Male

DRUGS (2)
  1. VELAGLUCERASE ALFA [Suspect]
     Active Substance: VELAGLUCERASE ALFA
     Indication: Gaucher^s disease
     Dosage: 2800 INTERNATIONAL UNIT, 2/MONTH
     Dates: start: 20110816
  2. VELAGLUCERASE ALFA [Suspect]
     Active Substance: VELAGLUCERASE ALFA
     Dosage: UNK UNK, 2/WEEK
     Dates: end: 20241125

REACTIONS (3)
  - Nasal polyps [Not Recovered/Not Resolved]
  - Blood pressure increased [Unknown]
  - Product distribution issue [Recovering/Resolving]

NARRATIVE: CASE EVENT DATE: 20240320
